FAERS Safety Report 8111826-5 (Version None)
Quarter: 2012Q1

REPORT INFORMATION
  Report Type: 
  Country: None (occurrence: None)
  Receive Date: 20120203
  Receipt Date: 20120201
  Transmission Date: 20120608
  Serious: Yes (Other)
  Sender: FDA-Public Use
  Company Number: US-PFIZER INC-2012028243

PATIENT
  Sex: Male
  Weight: 113 kg

DRUGS (7)
  1. CETIRIZINE [Concomitant]
     Dosage: 10 MG, DAILY
  2. LAMOTRIGINE [Concomitant]
     Indication: EPILEPSY
     Dosage: 400 MG IN THE MORNING AND 150 MG IN THE EVENING
  3. SERTRALINE [Concomitant]
     Indication: EPILEPSY
     Dosage: 200 MG, DAILY
  4. VIMPAT [Concomitant]
     Indication: EPILEPSY
     Dosage: 100 MG IN  THE MORNING AND 200 MG IN THE EVENING
  5. CARBAMAZEPINE [Interacting]
     Dosage: UNK
     Dates: start: 20120101
  6. CLORAZEPATE DIPOTASSIUM [Concomitant]
     Dosage: 15 MG, DAILY
  7. LYRICA [Suspect]
     Indication: EPILEPSY
     Dosage: 80 MG, DAILY

REACTIONS (7)
  - DIZZINESS [None]
  - VOMITING [None]
  - SYNCOPE [None]
  - ASTHENIA [None]
  - DRUG INTERACTION [None]
  - GENERAL PHYSICAL CONDITION ABNORMAL [None]
  - MEMORY IMPAIRMENT [None]
